FAERS Safety Report 20707746 (Version 1)
Quarter: 2022Q2

REPORT INFORMATION
  Report Type: Report from Study
  Country: US (occurrence: US)
  Receive Date: 20220413
  Receipt Date: 20220413
  Transmission Date: 20220720
  Serious: Yes (Hospitalization)
  Sender: FDA-Public Use
  Company Number: US-ABBVIE-22K-163-4356612-00

PATIENT
  Sex: Male

DRUGS (3)
  1. VENCLEXTA [Suspect]
     Active Substance: VENETOCLAX
     Indication: Acute myeloid leukaemia
     Dosage: WITH FOOD GLASS FULL GLASS OF WATER
     Route: 048
     Dates: start: 20220331, end: 20220331
  2. VENCLEXTA [Suspect]
     Active Substance: VENETOCLAX
     Dosage: WITH FOOD GLASS FULL GLASS OF WATER
     Route: 048
     Dates: start: 20220401, end: 20220401
  3. VENCLEXTA [Suspect]
     Active Substance: VENETOCLAX
     Dosage: WITH FOOD GLASS FULL GLASS OF WATER
     Route: 048
     Dates: start: 20220402, end: 20220403

REACTIONS (2)
  - Body temperature increased [Unknown]
  - Infection [Unknown]

NARRATIVE: CASE EVENT DATE: 20220101
